FAERS Safety Report 8293212-0 (Version None)
Quarter: 2012Q2

REPORT INFORMATION
  Report Type: 
  Country: None (occurrence: None)
  Receive Date: 20120417
  Receipt Date: 20110516
  Transmission Date: 20120825
  Serious: No
  Sender: FDA-Public Use
  Company Number: US-ASTRAZENECA-2011SE14677

PATIENT
  Age: 66 Year
  Sex: Female

DRUGS (2)
  1. NEXIUM [Suspect]
     Indication: OESOPHAGEAL STENOSIS
     Route: 048
     Dates: start: 20060101
  2. NEXIUM [Suspect]
     Indication: LICHEN PLANUS
     Route: 048
     Dates: start: 20060101

REACTIONS (2)
  - HEARING IMPAIRED [None]
  - EAR INFECTION [None]
